FAERS Safety Report 11903004 (Version 1)
Quarter: 2016Q1

REPORT INFORMATION
  Report Type: Report from Study
  Country: US (occurrence: US)
  Receive Date: 20160108
  Receipt Date: 20160108
  Transmission Date: 20160526
  Serious: No
  Sender: FDA-Public Use
  Company Number: US-ABBVIE-15P-163-1512878-00

PATIENT
  Sex: Male

DRUGS (1)
  1. VIEKIRA PAK [Suspect]
     Active Substance: DASABUVIR\OMBITASVIR\PARITAPREVIR\RITONAVIR
     Indication: CHRONIC HEPATITIS C
     Dosage: 2 PINK AND 1 BEIGE TABLET IN THE AM AND 1 BEIGE TABLET EVERY PM WITH FOOD
     Route: 048
     Dates: start: 20151014

REACTIONS (2)
  - Flatulence [Not Recovered/Not Resolved]
  - Drug dose omission [Unknown]
